FAERS Safety Report 10728065 (Version 2)
Quarter: 2015Q2

REPORT INFORMATION
  Report Type: Spontaneous
  Country: CA (occurrence: CA)
  Receive Date: 20150121
  Receipt Date: 20150514
  Transmission Date: 20150821
  Serious: Yes (Life-Threatening, Hospitalization, Other)
  Sender: FDA-Public Use
  Company Number: CA-PFIZER INC-2015021829

PATIENT
  Age: 58 Year
  Sex: Male

DRUGS (17)
  1. FUROSIDE [Concomitant]
     Active Substance: FUROSEMIDE
     Dosage: UNK
  2. ASPIRIN. [Concomitant]
     Active Substance: ASPIRIN
     Dosage: UNK
  3. PLAVIX [Concomitant]
     Active Substance: CLOPIDOGREL BISULFATE
     Dosage: UNK
  4. TECTA [Suspect]
     Active Substance: PANTOPRAZOLE MAGNESIUM
     Indication: GASTROOESOPHAGEAL REFLUX DISEASE
     Dosage: 40 MG, DAILY
     Dates: start: 20140124, end: 20140808
  5. NOVO-SPIROTON [Concomitant]
     Dosage: 25 MG, UNK
  6. REMERON [Concomitant]
     Active Substance: MIRTAZAPINE
     Dosage: UNK
  7. VENTOLIN HFA [Concomitant]
     Active Substance: ALBUTEROL SULFATE
     Dosage: UNK
  8. HUMALOG [Concomitant]
     Active Substance: INSULIN LISPRO
     Dosage: UNK
  9. NOVOLIN [Concomitant]
     Active Substance: INSULIN HUMAN
     Dosage: UNK (30/70)
  10. COLACE [Concomitant]
     Active Substance: DOCUSATE SODIUM
     Dosage: 100 MG, UNK
  11. CRESTOR [Concomitant]
     Active Substance: ROSUVASTATIN CALCIUM
     Dosage: 20 MG, UNK
  12. JANUVIA [Concomitant]
     Active Substance: SITAGLIPTIN PHOSPHATE
     Dosage: UNK
  13. EFFEXOR XR [Concomitant]
     Active Substance: VENLAFAXINE HYDROCHLORIDE
     Dosage: UNK
  14. VIBRAMYCIN [Concomitant]
     Active Substance: DOXYCYCLINE
     Dosage: 100 MG, UNK
  15. ZANTAC [Concomitant]
     Active Substance: RANITIDINE HYDROCHLORIDE
     Dosage: UNK
  16. APO-BISOPROLOL [Concomitant]
     Dosage: UNK
  17. GEN-RAMIPRIL [Concomitant]
     Dosage: UNK

REACTIONS (3)
  - Condition aggravated [Recovered/Resolved]
  - Hypomagnesaemia [Recovered/Resolved]
  - Diabetes mellitus [Recovered/Resolved]
